FAERS Safety Report 4721669-8 (Version None)
Quarter: 2005Q3

REPORT INFORMATION
  Report Type: 
  Country: None (occurrence: None)
  Receive Date: 20050721
  Receipt Date: 20050215
  Transmission Date: 20060218
  Serious: No
  Sender: FDA-Public Use
  Company Number: US-BRISTOL-MYERS SQUIBB COMPANY-12862355

PATIENT
  Age: 52 Year
  Sex: Male
  Weight: 77 kg

DRUGS (8)
  1. COUMADIN [Suspect]
     Indication: THROMBOSIS
     Dates: start: 20040101
  2. ALCOHOL [Concomitant]
  3. KLOR-CON [Concomitant]
  4. LASIX [Concomitant]
  5. LISINOPRIL [Concomitant]
  6. MARIJUANA [Concomitant]
  7. METOPROLOL [Concomitant]
  8. NITROGLYCERIN [Concomitant]

REACTIONS (1)
  - INTERNATIONAL NORMALISED RATIO FLUCTUATION [None]
